FAERS Safety Report 23475780 (Version 1)
Quarter: 2024Q1

REPORT INFORMATION
  Report Type: Report from Study
  Country: US (occurrence: US)
  Receive Date: 20240204
  Receipt Date: 20240204
  Transmission Date: 20240410
  Serious: No
  Sender: FDA-Public Use
  Company Number: US-EXELIXIS-CABO-23060765

PATIENT
  Age: 66 Year
  Sex: Female

DRUGS (3)
  1. CABOMETYX [Suspect]
     Active Substance: CABOZANTINIB S-MALATE
     Indication: Renal cancer
     Dosage: 40 MG, QD (2 TABLETS OF 20 MG) 4 DAYS PER WEEK; ONE 20 MG TABLET DAILY 3 DAYS PER WEEK
     Route: 048
     Dates: start: 20221103
  2. CABOMETYX [Suspect]
     Active Substance: CABOZANTINIB S-MALATE
     Dosage: 20 MG AND 40 MG, EVERY OTHER DAY
     Route: 048
     Dates: start: 202212
  3. CABOMETYX [Suspect]
     Active Substance: CABOZANTINIB S-MALATE
     Dosage: 20 MG, QD
     Route: 048
     Dates: start: 20230124

REACTIONS (5)
  - Hepatic enzyme abnormal [Recovered/Resolved]
  - Epigastric discomfort [Unknown]
  - Dyspepsia [Unknown]
  - Inappropriate schedule of product administration [Unknown]
  - Product prescribing issue [Unknown]

NARRATIVE: CASE EVENT DATE: 20221103
